FAERS Safety Report 9702820 (Version 1)
Quarter: 2013Q4

REPORT INFORMATION
  Report Type: Spontaneous
  Country: FR (occurrence: FR)
  Receive Date: 20131121
  Receipt Date: 20131121
  Transmission Date: 20140711
  Serious: Yes (Hospitalization)
  Sender: FDA-Public Use
  Company Number: FR-GLAXOSMITHKLINE-B0941947A

PATIENT
  Age: 52 Year
  Sex: Male

DRUGS (9)
  1. ZOPHREN [Suspect]
     Indication: VOMITING
     Route: 042
     Dates: start: 20130930, end: 20131004
  2. TEGELINE [Suspect]
     Indication: GUILLAIN-BARRE SYNDROME
     Dosage: 35G PER DAY
     Route: 042
     Dates: start: 20130930, end: 20131004
  3. TRAMADOL [Suspect]
     Indication: PAIN
     Route: 048
     Dates: start: 20130930
  4. PARACETAMOL [Concomitant]
     Indication: PAIN
     Dosage: 1G FOUR TIMES PER DAY
     Route: 048
     Dates: start: 201304
  5. IMOVANE [Concomitant]
     Indication: INSOMNIA
     Dosage: 3.75MG PER DAY
     Route: 048
     Dates: start: 201306
  6. INEXIUM [Concomitant]
     Indication: ABDOMINAL PAIN UPPER
     Dosage: 20MG PER DAY
     Route: 048
     Dates: start: 201304
  7. LOVENOX [Concomitant]
     Indication: THROMBOSIS PROPHYLAXIS
     Dosage: 4000IUAX PER DAY
     Route: 058
     Dates: start: 201304
  8. COVERSYL [Concomitant]
     Indication: HYPERTENSION
     Dosage: 2.5MG PER DAY
     Route: 048
     Dates: start: 201304
  9. DIFFU K [Concomitant]
     Route: 048
     Dates: start: 201304

REACTIONS (1)
  - Neutropenia [Unknown]
